FAERS Safety Report 16799878 (Version 1)
Quarter: 2019Q4

REPORT INFORMATION
  Report Type: Spontaneous
  Country: US (occurrence: US)
  Receive Date: 20190912
  Receipt Date: 20190912
  Transmission Date: 20200122
  Serious: Yes (Disabling)
  Sender: FDA-Public Use
  Company Number: None

PATIENT
  Age: 57 Year
  Sex: Female
  Weight: 72 kg

DRUGS (3)
  1. LEVIFLOXACIN [Suspect]
     Active Substance: LEVOFLOXACIN
     Indication: SINUSITIS
  2. LORATADINE. [Concomitant]
     Active Substance: LORATADINE
  3. MULTIVITAMIN [Concomitant]
     Active Substance: VITAMINS

REACTIONS (5)
  - Throat irritation [None]
  - Skin burning sensation [None]
  - Anxiety [None]
  - Ear discomfort [None]
  - Burning sensation [None]

NARRATIVE: CASE EVENT DATE: 20190218
